FAERS Safety Report 6136065-9 (Version None)
Quarter: 2009Q1

REPORT INFORMATION
  Report Type: 
  Country: None (occurrence: None)
  Receive Date: 20090325
  Receipt Date: 20090308
  Transmission Date: 20090719
  Serious: Yes (Other)
  Sender: FDA-Public Use
  Company Number: 2007S1006602

PATIENT
  Age: 57 Year
  Sex: Female

DRUGS (15)
  1. PHOSPHOSODA FLAVOR NOT SPECIFIED [Suspect]
     Indication: COLONOSCOPY
     Dosage: 135 ML;TOTAL;PO
     Route: 048
     Dates: start: 20040531, end: 20040531
  2. VITAMIN E/00110501 [Concomitant]
  3. VIOXX [Concomitant]
  4. PRAVACHOL [Concomitant]
  5. NEXIUM [Concomitant]
  6. MAGNESIUM OXIDE [Concomitant]
  7. LISINOPRIL [Concomitant]
  8. LANTUS [Concomitant]
  9. IRON FORTIFIED [Concomitant]
  10. HUMALOG [Concomitant]
  11. GLUCOPHAGE [Concomitant]
  12. EFFEXOR XR [Concomitant]
  13. EFFEXOR XR [Concomitant]
  14. CENTRUM SILVER [Concomitant]
  15. CALTRATE 600 [Concomitant]

REACTIONS (3)
  - DRUG TOXICITY [None]
  - HYPERTENSIVE NEPHROPATHY [None]
  - RENAL FAILURE CHRONIC [None]
